FAERS Safety Report 25650577 (Version 1)
Quarter: 2025Q3

REPORT INFORMATION
  Report Type: Spontaneous
  Country: JP (occurrence: JP)
  Receive Date: 20250806
  Receipt Date: 20250806
  Transmission Date: 20251020
  Serious: Yes (Other)
  Sender: BIOCODEX
  Company Number: JP-BIOCODEX2-2025001240

PATIENT

DRUGS (1)
  1. DIACOMIT [Suspect]
     Active Substance: STIRIPENTOL
     Indication: Product used for unknown indication
     Route: 050

REACTIONS (2)
  - Seizure [Unknown]
  - Encephalopathy [Unknown]

NARRATIVE: CASE EVENT DATE: 20250101
